FAERS Safety Report 4313126-8 (Version None)
Quarter: 2004Q1

REPORT INFORMATION
  Report Type: 
  Country: None (occurrence: None)
  Receive Date: 20040304
  Receipt Date: 20040223
  Transmission Date: 20041129
  Serious: Yes (Life-Threatening)
  Sender: FDA-Public Use
  Company Number: FLUV00303003624

PATIENT
  Age: 76 Year
  Sex: Male

DRUGS (10)
  1. LUVOX [Suspect]
     Indication: OBSESSIVE-COMPULSIVE DISORDER
     Dosage: SEE IMAGE
     Route: 048
     Dates: start: 20020715, end: 20020728
  2. LUVOX [Suspect]
     Indication: OBSESSIVE-COMPULSIVE DISORDER
     Dosage: SEE IMAGE
     Route: 048
     Dates: start: 20020729, end: 20021014
  3. LUVOX [Suspect]
     Indication: OBSESSIVE-COMPULSIVE DISORDER
     Dosage: SEE IMAGE
     Route: 048
     Dates: start: 20021015
  4. . [Concomitant]
  5. . [Concomitant]
  6. ARICEPT [Concomitant]
  7. SEROQUEL [Concomitant]
  8. ATARAX [Concomitant]
  9. RISPERDAL [Concomitant]
  10. LENDORM [Concomitant]

REACTIONS (2)
  - PORIOMANIA [None]
  - RESTLESSNESS [None]
